FAERS Safety Report 6437898-1 (Version None)
Quarter: 2009Q4

REPORT INFORMATION
  Report Type: 
  Country: None (occurrence: None)
  Receive Date: 20091112
  Receipt Date: 20081124
  Transmission Date: 20100525
  Serious: No
  Sender: FDA-Public Use
  Company Number: US-ASTRAZENECA-2009UW17200

PATIENT
  Age: 91 Year
  Sex: Male

DRUGS (3)
  1. PRILOSEC OTC [Suspect]
     Indication: GASTROOESOPHAGEAL REFLUX DISEASE
     Dosage: 2 TABLET, 2 /DAY
     Route: 048
     Dates: start: 20080824, end: 20081123
  2. LIPITOR [Concomitant]
  3. PLAVIX [Concomitant]

REACTIONS (5)
  - BALANCE DISORDER [None]
  - DIARRHOEA [None]
  - DIZZINESS [None]
  - INAPPROPRIATE SCHEDULE OF DRUG ADMINISTRATION [None]
  - INCORRECT DRUG ADMINISTRATION DURATION [None]
